FAERS Safety Report 9419686 (Version 1)
Quarter: 2013Q3

REPORT INFORMATION
  Report Type: Spontaneous
  Country: US (occurrence: None)
  Receive Date: 20130723
  Receipt Date: 20130723
  Transmission Date: 20140515
  Serious: Yes (Disabling)
  Sender: FDA-Public Use
  Company Number: None

PATIENT
  Age: 62 Year
  Sex: Female
  Weight: 73.48 kg

DRUGS (1)
  1. PAXIL CR [Suspect]
     Indication: DEPRESSION
     Dosage: 50MG 2 DAILY PO ?REDUCED DOSAGE
     Route: 048
     Dates: start: 19850923, end: 20130719

REACTIONS (8)
  - Skin ulcer [None]
  - Skin lesion [None]
  - Erythema [None]
  - Skin exfoliation [None]
  - Skin discolouration [None]
  - Unevaluable event [None]
  - Blister [None]
  - Scab [None]
